FAERS Safety Report 5654344-6 (Version None)
Quarter: 2008Q1

REPORT INFORMATION
  Report Type: 
  Country: None (occurrence: None)
  Receive Date: 20080305
  Receipt Date: 20080222
  Transmission Date: 20080703
  Serious: Yes (Death)
  Sender: FDA-Public Use
  Company Number: L08-USA-00315-23

PATIENT
  Age: 28 Year
  Sex: Male

DRUGS (4)
  1. CITALOPRAM HYDROBROMIDE [Suspect]
  2. FENTANYL [Suspect]
  3. OXYCODONE HCL [Suspect]
  4. METHOCARBAMOL [Suspect]

REACTIONS (4)
  - CARDIAC ARREST [None]
  - DRUG ABUSE [None]
  - DRUG TOXICITY [None]
  - RESPIRATORY ARREST [None]
